FAERS Safety Report 4332278-7 (Version None)
Quarter: 2004Q1

REPORT INFORMATION
  Report Type: 
  Country: None (occurrence: None)
  Receive Date: 20040326
  Receipt Date: 20040119
  Transmission Date: 20041129
  Serious: No
  Sender: FDA-Public Use
  Company Number: WAES 0401USA01409

PATIENT
  Sex: Female

DRUGS (1)
  1. INVANZ [Suspect]
     Dosage: 0.5 GM/

REACTIONS (1)
  - DISORIENTATION [None]
